FAERS Safety Report 24342271 (Version 2)
Quarter: 2024Q4

REPORT INFORMATION
  Report Type: Spontaneous
  Country: FR (occurrence: FR)
  Receive Date: 20240920
  Receipt Date: 20241219
  Transmission Date: 20250114
  Serious: Yes (Other)
  Sender: AUROBINDO
  Company Number: FR-AFSSAPS-AVNT2024000684

PATIENT
  Age: 21 Year
  Sex: Male

DRUGS (4)
  1. DIAZEPAM [Suspect]
     Active Substance: DIAZEPAM
     Indication: Product used for unknown indication
     Dosage: UNK,BETWEEN 0 AND 10 CPS/D
     Route: 048
     Dates: start: 2024
  2. ALCOHOL [Suspect]
     Active Substance: ALCOHOL
     Indication: Product used for unknown indication
     Dosage: UNK,500 ML TO 1L OF VODKA / DAY
     Route: 048
     Dates: start: 2019
  3. BACLOFEN [Suspect]
     Active Substance: BACLOFEN
     Indication: Product used for unknown indication
     Dosage: 400 MILLIGRAM, ONCE A DAY (400 MG/D)
     Route: 048
     Dates: start: 202402
  4. CYAMEMAZINE [Suspect]
     Active Substance: CYAMEMAZINE
     Indication: Product used for unknown indication
     Dosage: 300 MILLIGRAM, ONCE A DAY (300 MG/DAY)
     Route: 048
     Dates: start: 202402

REACTIONS (1)
  - Drug use disorder [Not Recovered/Not Resolved]
